FAERS Safety Report 9664835 (Version 1)
Quarter: 2013Q4

REPORT INFORMATION
  Report Type: Spontaneous
  Country: BR (occurrence: BR)
  Receive Date: 20131101
  Receipt Date: 20131101
  Transmission Date: 20140711
  Serious: Yes (Other)
  Sender: FDA-Public Use
  Company Number: BR-ABBVIE-13P-020-1161777-00

PATIENT
  Age: 69 Year
  Sex: Female
  Weight: 69 kg

DRUGS (6)
  1. HUMIRA [Suspect]
     Indication: CROHN^S DISEASE
     Dosage: WEEK 0
     Route: 058
     Dates: start: 201304
  2. HUMIRA [Suspect]
     Route: 058
  3. CARVEDILOL [Concomitant]
     Indication: CARDIAC DISORDER
     Route: 048
     Dates: start: 201304
  4. CALCIUM D [Concomitant]
     Indication: OSTEOPOROSIS
     Route: 048
     Dates: start: 2010
  5. DIAZEPAM [Concomitant]
     Indication: DEPRESSION
     Route: 048
     Dates: start: 1975
  6. FUROSEMIDE [Concomitant]
     Indication: CARDIAC DISORDER
     Route: 048
     Dates: start: 2004

REACTIONS (3)
  - Cerebrovascular accident [Recovering/Resolving]
  - Rash pustular [Not Recovered/Not Resolved]
  - Skin disorder [Unknown]
